FAERS Safety Report 6015663-7 (Version None)
Quarter: 2008Q4

REPORT INFORMATION
  Report Type: 
  Country: None (occurrence: None)
  Receive Date: 20081222
  Receipt Date: 20081120
  Transmission Date: 20090506
  Serious: No
  Sender: FDA-Public Use
  Company Number: US-BAYER-200839438NA

PATIENT
  Sex: Female

DRUGS (1)
  1. MIRENA [Suspect]
     Indication: UNEVALUABLE EVENT
     Route: 015
     Dates: start: 20081014, end: 20081119

REACTIONS (2)
  - ARTHRALGIA [None]
  - PAIN [None]
